FAERS Safety Report 19051167 (Version 1)
Quarter: 2021Q1

REPORT INFORMATION
  Report Type: Spontaneous
  Country: US (occurrence: US)
  Receive Date: 20210324
  Receipt Date: 20210324
  Transmission Date: 20210420
  Serious: No
  Sender: FDA-Public Use
  Company Number: None

PATIENT
  Age: 57 Year
  Sex: Female
  Weight: 58.05 kg

DRUGS (3)
  1. ADVIL [Concomitant]
     Active Substance: IBUPROFEN
  2. VICODIN [Concomitant]
     Active Substance: ACETAMINOPHEN\HYDROCODONE BITARTRATE
  3. DEPO?MEDROL [Suspect]
     Active Substance: METHYLPREDNISOLONE ACETATE
     Indication: INTERVERTEBRAL DISC PROTRUSION
     Dosage: ?          QUANTITY:1 INJECTION(S);?OTHER FREQUENCY:EVERY 4 MONTHS;?

REACTIONS (7)
  - Eye irritation [None]
  - Pituitary tumour benign [None]
  - Meningitis chemical [None]
  - Autoimmune disorder [None]
  - Arachnoiditis [None]
  - Amenorrhoea [None]
  - Papillary thyroid cancer [None]

NARRATIVE: CASE EVENT DATE: 20010421
